FAERS Safety Report 23737729 (Version 4)
Quarter: 2024Q2

REPORT INFORMATION
  Report Type: Report from Study
  Country: US (occurrence: US)
  Receive Date: 20240412
  Receipt Date: 20240603
  Transmission Date: 20240716
  Serious: Yes (Hospitalization, Other)
  Sender: FDA-Public Use
  Company Number: US-JNJFOC-20231053717

PATIENT
  Age: 55 Year
  Sex: Female

DRUGS (1)
  1. DARZALEX FASPRO [Suspect]
     Active Substance: DARATUMUMAB\HYALURONIDASE-FIHJ
     Indication: Plasma cell myeloma
     Route: 058
     Dates: start: 20231013, end: 20240205

REACTIONS (12)
  - COVID-19 [Unknown]
  - Pneumonia [Unknown]
  - Haemoglobin decreased [Unknown]
  - Pruritus [Recovered/Resolved]
  - Sneezing [Recovered/Resolved]
  - Rhinorrhoea [Recovered/Resolved]
  - Nausea [Not Recovered/Not Resolved]
  - Eye pruritus [Recovered/Resolved]
  - Tumour marker increased [Unknown]
  - Renal function test abnormal [Unknown]
  - Full blood count abnormal [Unknown]
  - Haematoma [Unknown]

NARRATIVE: CASE EVENT DATE: 20231013
